FAERS Safety Report 10776003 (Version 2)
Quarter: 2021Q3

REPORT INFORMATION
  Report Type: Spontaneous
  Country: US (occurrence: US)
  Receive Date: 20150209
  Receipt Date: 20210805
  Transmission Date: 20211014
  Serious: Yes (Hospitalization, Other)
  Sender: FDA-Public Use
  Company Number: US-PFIZER INC-2015046302

PATIENT
  Age: 36 Year
  Sex: Male

DRUGS (19)
  1. METHADONE [Interacting]
     Active Substance: METHADONE HYDROCHLORIDE
     Indication: ANALGESIC THERAPY
     Dosage: 30 MG, 4X/DAY (EVERY 6 HOURS)
  2. LORAZEPAM. [Concomitant]
     Active Substance: LORAZEPAM
     Indication: SEDATION
     Dosage: 6 MG, AS NEEDED (EVERY 2 HOURS)
     Route: 042
  3. CLONAZEPAM. [Concomitant]
     Active Substance: CLONAZEPAM
     Indication: ANXIETY
     Dosage: 1 MG, 3X/DAY (FREQ: 3 DAY; INTERVAL: 1)
  4. VANCOMYCIN [Concomitant]
     Active Substance: VANCOMYCIN
     Dosage: GOAL TROUGH OF 15?20 MCG/ML
  5. LORAZEPAM. [Concomitant]
     Active Substance: LORAZEPAM
     Indication: PAIN
     Dosage: 6 MG, EVERY 4 HOURS
     Route: 042
  6. VORICONAZOLE. [Suspect]
     Active Substance: VORICONAZOLE
     Dosage: 200 MG, 2X/DAY (EVERY 12 HOURS)
  7. OXYCODONE [Concomitant]
     Active Substance: OXYCODONE
     Indication: ANALGESIC THERAPY
     Dosage: 20 MG, AS NEEDED (EVERY 4 HOURS )
  8. ATOMOXETINE. [Concomitant]
     Active Substance: ATOMOXETINE HYDROCHLORIDE
     Indication: BIPOLAR DISORDER
  9. CLONAZEPAM. [Concomitant]
     Active Substance: CLONAZEPAM
     Indication: SUBSTANCE ABUSE
  10. FENTANYL CITRATE. [Interacting]
     Active Substance: FENTANYL CITRATE
     Indication: ANALGESIC THERAPY
     Dosage: 150 UG/HOUR
  11. ATOMOXETINE. [Concomitant]
     Active Substance: ATOMOXETINE HYDROCHLORIDE
     Indication: ANXIETY
     Dosage: 80 MG, DAILY (FREQ: 1 DAY; INTERVAL: 1)
  12. LORAZEPAM. [Concomitant]
     Active Substance: LORAZEPAM
     Indication: SEDATION
     Dosage: 10 MG, EVERY 4 HRS
  13. CEFEPIME [Concomitant]
     Active Substance: CEFEPIME HYDROCHLORIDE
     Indication: THERMAL BURN
     Dosage: 2 G, 2X/DAY (EVERY 12 HOURS)
     Route: 041
  14. FENTANYL CITRATE. [Interacting]
     Active Substance: FENTANYL CITRATE
     Indication: PAIN
     Dosage: 200 UG/HOUR
     Route: 041
  15. FENTANYL CITRATE. [Interacting]
     Active Substance: FENTANYL CITRATE
     Indication: SEDATION
     Dosage: 150 UG, AS NEEDED (EVERY 2 HRS)
     Route: 041
  16. DIAZEPAM. [Concomitant]
     Active Substance: DIAZEPAM
     Indication: SEDATION
     Dosage: 60 MG, 2X/DAY (EVERY 12 HOURS)
     Route: 050
  17. VECURONIUM [Concomitant]
     Active Substance: VECURONIUM BROMIDE
     Indication: PARALYSIS
     Dosage: UNK
  18. ATOMOXETINE. [Concomitant]
     Active Substance: ATOMOXETINE HYDROCHLORIDE
     Indication: SUBSTANCE ABUSE
  19. CLONAZEPAM. [Concomitant]
     Active Substance: CLONAZEPAM
     Indication: BIPOLAR DISORDER

REACTIONS (2)
  - Drug interaction [Recovered/Resolved]
  - Serotonin syndrome [Recovered/Resolved]
